FAERS Safety Report 5424573-5 (Version None)
Quarter: 2007Q3

REPORT INFORMATION
  Report Type: 
  Country: None (occurrence: None)
  Receive Date: 20070822
  Receipt Date: 20070814
  Transmission Date: 20080115
  Serious: Yes (Disabling)
  Sender: FDA-Public Use
  Company Number: ABNCM-06-0426

PATIENT
  Age: 64 Year
  Sex: Female
  Weight: 68.4932 kg

DRUGS (6)
  1. ABRAXANE [Suspect]
     Indication: BREAST CANCER METASTATIC
     Dosage: 180 MG TOTAL DOSE (100 MG/M2,WEEKLY X 3 WEEKS THEN 1 WEEK REST)
     Dates: start: 20060207, end: 20060808
  2. COUMADIN [Concomitant]
  3. LORTAB [Concomitant]
  4. KYTRIL [Concomitant]
  5. PHENERGAN [Concomitant]
  6. SYNTHROID [Concomitant]

REACTIONS (5)
  - HAEMORRHAGE [None]
  - NAIL DISORDER [None]
  - NAIL TOXICITY [None]
  - ONYCHALGIA [None]
  - PURULENCE [None]
